FAERS Safety Report 20432857 (Version 1)
Quarter: 2022Q1

REPORT INFORMATION
  Report Type: Spontaneous
  Country: CA (occurrence: CA)
  Receive Date: 20220205
  Receipt Date: 20220205
  Transmission Date: 20220423
  Serious: Yes (Life-Threatening, Other)
  Sender: FDA-Public Use
  Company Number: CA-CELLTRION INC.-2022CA001313

PATIENT

DRUGS (15)
  1. INFLIXIMAB [Suspect]
     Active Substance: INFLIXIMAB
     Indication: Arthritis
     Dosage: 200 MG
     Route: 065
  2. INFLIXIMAB [Suspect]
     Active Substance: INFLIXIMAB
     Indication: Psoriatic arthropathy
     Dosage: 200 MG, MONTHLY
     Route: 042
  3. COSENTYX [Suspect]
     Active Substance: SECUKINUMAB
     Indication: Psoriatic arthropathy
     Route: 065
  4. ERELZI [Suspect]
     Active Substance: ETANERCEPT-SZZS
     Route: 065
  5. HUMIRA [Suspect]
     Active Substance: ADALIMUMAB
     Indication: Psoriatic arthropathy
     Route: 065
  6. IXEKIZUMAB [Suspect]
     Active Substance: IXEKIZUMAB
     Indication: Psoriatic arthropathy
     Dosage: 80 MG, MONTHLY
     Route: 065
  7. CALCIUM [Concomitant]
     Active Substance: CALCIUM
     Indication: Bone disorder
     Route: 065
  8. ERGOCALCIFEROL [Concomitant]
     Active Substance: ERGOCALCIFEROL
     Dosage: 4000 IU, 1X/DAY
     Route: 065
  9. FUCUS VESICULOSUS, GARCINIA GUMMI-GUTTA, GENTIANA LUTEA, GUGGULSTERONE [Concomitant]
     Indication: Thyroid disorder
     Dosage: 1 DF, 3X/DAY
     Route: 065
  10. GLUTATHIONE [Concomitant]
     Active Substance: GLUTATHIONE
     Indication: Gastrointestinal disorder
     Dosage: 1 DF, 1X/DAY
     Route: 065
  11. LAMIVUDINE [Concomitant]
     Active Substance: LAMIVUDINE
     Dosage: 100 MG, 1X/DAY
     Route: 065
  12. MAGNESIUM [Concomitant]
     Active Substance: MAGNESIUM
     Dosage: UNK, 1X/DAY
     Route: 065
  13. PREDNISONE [Concomitant]
     Active Substance: PREDNISONE
     Indication: Arthritis
     Dosage: 15 MG
     Route: 065
  14. PREMARIN [Concomitant]
     Active Substance: ESTROGENS, CONJUGATED
     Route: 065
  15. VITAMIN B12 [Concomitant]
     Active Substance: CYANOCOBALAMIN
     Dosage: 3 DF, 1X/DAY
     Route: 065

REACTIONS (16)
  - Anaemia [Recovered/Resolved]
  - Arthralgia [Recovered/Resolved]
  - Bowel movement irregularity [Recovered/Resolved]
  - C-reactive protein increased [Recovered/Resolved]
  - Chest discomfort [Recovered/Resolved]
  - Chest pain [Recovered/Resolved]
  - Defaecation urgency [Recovered/Resolved]
  - Dizziness [Recovered/Resolved]
  - Enthesopathy [Recovered/Resolved]
  - Flushing [Recovered/Resolved]
  - Hyperhidrosis [Recovered/Resolved]
  - Nausea [Recovered/Resolved]
  - Restlessness [Recovered/Resolved]
  - Tendonitis [Recovered/Resolved]
  - Treatment failure [Recovered/Resolved]
  - Weight decreased [Recovered/Resolved]
